FAERS Safety Report 17588063 (Version 1)
Quarter: 2020Q1

REPORT INFORMATION
  Report Type: Spontaneous
  Country: CN (occurrence: CN)
  Receive Date: 20200326
  Receipt Date: 20200326
  Transmission Date: 20200409
  Serious: No
  Sender: FDA-Public Use
  Company Number: CN-B.BRAUN MEDICAL INC.-2082030

PATIENT
  Age: 54 Year
  Sex: Female
  Weight: 65 kg

DRUGS (1)
  1. NUTRILIPID I.V. FAT EMULSION [Suspect]
     Active Substance: SOYBEAN OIL
     Indication: ASTHENIA
     Route: 041
     Dates: start: 20200226, end: 20200226

REACTIONS (2)
  - Pruritus [Recovered/Resolved]
  - Rash [Recovered/Resolved]

NARRATIVE: CASE EVENT DATE: 20200226
